FAERS Safety Report 8377303-1 (Version None)
Quarter: 2012Q1

REPORT INFORMATION
  Report Type: 
  Country: None (occurrence: None)
  Receive Date: 20120323
  Receipt Date: 20110325
  Transmission Date: 20120608
  Serious: Yes (Disabling)
  Sender: FDA-Public Use
  Company Number: 163-21880-11033049

PATIENT
  Age: 86 Year
  Sex: Female

DRUGS (4)
  1. BONIVA [Concomitant]
  2. ESTRACE [Concomitant]
  3. REVLIMID [Suspect]
     Indication: MULTIPLE MYELOMA
     Dosage: 10 MG, DAILY FOR 21 DAYS, PO
     Route: 048
     Dates: start: 20090318, end: 20110301
  4. FELODIPINE [Concomitant]

REACTIONS (1)
  - FATIGUE [None]
